FAERS Safety Report 17324883 (Version 1)
Quarter: 2020Q1

REPORT INFORMATION
  Report Type: Spontaneous
  Country: US (occurrence: US)
  Receive Date: 20200110
  Receipt Date: 20200110
  Transmission Date: 20200409
  Serious: No
  Sender: FDA-Public Use
  Company Number: None

PATIENT
  Age: 25 Year
  Sex: Male

DRUGS (6)
  1. CIPROFLOXACN [Concomitant]
     Active Substance: CIPROFLOXACIN
  2. METRONIDAZOL [Concomitant]
     Active Substance: METRONIDAZOLE
  3. MORPHINE SUL [Concomitant]
     Active Substance: MORPHINE SULFATE
  4. ONDANSETRON [Concomitant]
     Active Substance: ONDANSETRON
  5. PULMOZYME [Concomitant]
     Active Substance: DORNASE ALFA
  6. TRIKAFTA [Suspect]
     Active Substance: ELEXACAFTOR\IVACAFTOR\TEZACAFTOR
     Indication: INFECTIVE PULMONARY EXACERBATION OF CYSTIC FIBROSIS
     Dosage: ?          OTHER DOSE:2 TABS - 1 TAB;OTHER FREQUENCY:QAM - QPM;?
     Route: 048

REACTIONS (3)
  - Headache [None]
  - Therapy cessation [None]
  - Abdominal pain upper [None]

NARRATIVE: CASE EVENT DATE: 201912
